FAERS Safety Report 21207984 (Version 1)
Quarter: 2022Q3

REPORT INFORMATION
  Report Type: Spontaneous
  Country: US (occurrence: US)
  Receive Date: 20220812
  Receipt Date: 20220812
  Transmission Date: 20221026
  Serious: No
  Sender: FDA-Public Use
  Company Number: US-PFIZER INC-202200713945

PATIENT
  Age: 75 Year
  Sex: Male
  Weight: 104.31 kg

DRUGS (3)
  1. TIKOSYN [Suspect]
     Active Substance: DOFETILIDE
     Indication: Atrial fibrillation
     Dosage: 250 UG, 2X/DAY
     Route: 048
  2. TIKOSYN [Suspect]
     Active Substance: DOFETILIDE
     Dosage: 750 UG, DAILY (2 TABLETS IN THE AM, 1 TABLET IN THE PM)
     Route: 048
     Dates: start: 20211019
  3. ELIQUIS [Concomitant]
     Active Substance: APIXABAN
     Dosage: 1 TABLET, TWO TIMES DAILY
     Route: 048
     Dates: start: 20220506

REACTIONS (2)
  - Weight decreased [Unknown]
  - Off label use [Unknown]
